FAERS Safety Report 15400689 (Version 1)
Quarter: 2018Q4

REPORT INFORMATION
  Report Type: Spontaneous
  Country: CZ (occurrence: CZ)
  Receive Date: 20180919
  Receipt Date: 20180919
  Transmission Date: 20190204
  Serious: Yes (Life-Threatening, Hospitalization, Other)
  Sender: FDA-Public Use
  Company Number: CZ-ACCORD-062097

PATIENT
  Age: 82 Year
  Sex: Female

DRUGS (21)
  1. LEVETIRACETAM. [Suspect]
     Active Substance: LEVETIRACETAM
     Indication: PARTIAL SEIZURES
     Route: 042
  2. PARACETAMOL [Suspect]
     Active Substance: ACETAMINOPHEN
     Indication: PAIN
  3. PHENYTOIN. [Suspect]
     Active Substance: PHENYTOIN
     Indication: PARTIAL SEIZURES
  4. AMOXICILLIN. [Suspect]
     Active Substance: AMOXICILLIN
     Indication: PNEUMONIA
  5. GLURENON [Suspect]
     Active Substance: GLIQUIDONE
     Indication: PRODUCT USED FOR UNKNOWN INDICATION
     Route: 048
  6. PROPOFOL. [Suspect]
     Active Substance: PROPOFOL
     Indication: CLONIC CONVULSION
     Route: 065
  7. EUTHYROX [Concomitant]
     Active Substance: LEVOTHYROXINE SODIUM
  8. KAPIDIN [Concomitant]
     Active Substance: LERCANIDIPINE HYDROCHLORIDE
     Indication: HYPERTENSION
  9. IBUPROFEN. [Suspect]
     Active Substance: IBUPROFEN
     Indication: PAIN
  10. LISALGIL [Suspect]
     Active Substance: METAMIZOLE SODIUM
     Indication: PAIN
     Route: 065
  11. TRITACE [Concomitant]
     Active Substance: RAMIPRIL
     Indication: HYPERTENSION
  12. CEFTRIAXONE. [Suspect]
     Active Substance: CEFTRIAXONE
     Indication: PNEUMONIA
  13. VALPROATE [Suspect]
     Active Substance: VALPROIC ACID
     Indication: PARTIAL SEIZURES
  14. MILURIT [Suspect]
     Active Substance: ALLOPURINOL
     Indication: GOUT
  15. VASILIP [Concomitant]
     Active Substance: SIMVASTATIN
  16. GODASAL [Concomitant]
     Active Substance: ASPIRIN\GLYCINE
     Indication: PRODUCT USED FOR UNKNOWN INDICATION
  17. FLUCONAZOLE. [Suspect]
     Active Substance: FLUCONAZOLE
     Indication: PNEUMONIA
  18. CYNT [Concomitant]
     Indication: HYPERTENSION
  19. DIAZEPAM. [Suspect]
     Active Substance: DIAZEPAM
     Indication: PARTIAL SEIZURES
  20. LOKREN [Concomitant]
     Active Substance: BETAXOLOL HYDROCHLORIDE
     Indication: HYPERTENSION
  21. METAMIZOLE SODIUM [Suspect]
     Active Substance: METAMIZOLE SODIUM
     Indication: PAIN

REACTIONS (9)
  - Drug ineffective [Unknown]
  - Skin laceration [Unknown]
  - Skin laceration [Recovered/Resolved with Sequelae]
  - Pneumonia [Recovering/Resolving]
  - Status epilepticus [Recovering/Resolving]
  - Stevens-Johnson syndrome [Recovered/Resolved with Sequelae]
  - Sopor [Recovering/Resolving]
  - Rash [Recovered/Resolved with Sequelae]
  - Depressed level of consciousness [Recovering/Resolving]
